FAERS Safety Report 4498459-7 (Version None)
Quarter: 2004Q4

REPORT INFORMATION
  Report Type: 
  Country: None (occurrence: None)
  Receive Date: 20041105
  Receipt Date: 20041022
  Transmission Date: 20050328
  Serious: Yes (Other)
  Sender: FDA-Public Use
  Company Number: GBR-2004-0001334

PATIENT
  Age: 77 Year
  Sex: Female

DRUGS (2)
  1. MORPHINE SULFATE [Suspect]
     Indication: PAIN
     Dosage: 200 MG, Q12H
  2. ORAMORPH SR [Concomitant]

REACTIONS (3)
  - MEDICATION ERROR [None]
  - MIOSIS [None]
  - OVERDOSE [None]
